FAERS Safety Report 13430942 (Version 2)
Quarter: 2017Q3

REPORT INFORMATION
  Report Type: Spontaneous
  Country: JP (occurrence: JP)
  Receive Date: 20170412
  Receipt Date: 20170821
  Transmission Date: 20171127
  Serious: Yes (Other)
  Sender: FDA-Public Use
  Company Number: JP-ELI_LILLY_AND_COMPANY-JP201704002819

PATIENT
  Age: 65 Year
  Sex: Female
  Weight: 53 kg

DRUGS (11)
  1. CYMBALTA [Suspect]
     Active Substance: DULOXETINE HYDROCHLORIDE
     Indication: BACK PAIN
     Dosage: 20 MG, QD
     Route: 048
     Dates: start: 20170324, end: 20170403
  2. DOGMATYL [Concomitant]
     Active Substance: SULPIRIDE
     Indication: GASTRITIS
     Dosage: 50 MG, TID
     Route: 048
     Dates: start: 20041023, end: 20170323
  3. PROCYLIN [Concomitant]
     Active Substance: BERAPROST SODIUM
     Indication: FEELING COLD
     Dosage: 20 UG, TID
     Route: 048
     Dates: start: 2008
  4. DOGMATYL [Concomitant]
     Active Substance: SULPIRIDE
     Dosage: 50 MG, DAILY
     Route: 048
     Dates: start: 20170324, end: 20170402
  5. BILASTINE [Concomitant]
     Active Substance: BILASTINE
     Indication: SEASONAL ALLERGY
     Dosage: UNK
     Route: 048
     Dates: start: 20170324
  6. GASTER [Concomitant]
     Active Substance: FAMOTIDINE
     Indication: GASTRITIS
     Dosage: 10 MG, BID
     Route: 048
     Dates: start: 20170307
  7. DOGMATYL [Concomitant]
     Active Substance: SULPIRIDE
     Dosage: 50 MG, BID
     Route: 048
     Dates: start: 20170403
  8. METHYCOBAL [Concomitant]
     Active Substance: METHYLCOBALAMIN
     Indication: NEURALGIA
     Dosage: 500 UG, TID
     Route: 048
     Dates: start: 2008
  9. PROCYLIN [Concomitant]
     Active Substance: BERAPROST SODIUM
     Indication: NEURALGIA
  10. NEUROTROPIN                        /06251301/ [Concomitant]
     Active Substance: ORYCTOLAGUS CUNICULUS SKIN
     Indication: BACK PAIN
     Dosage: UNK
     Route: 048
  11. RIKKUNSHITO                        /08041001/ [Concomitant]
     Active Substance: HERBALS
     Indication: GASTRITIS
     Dosage: 2.5 G, TID
     Route: 048
     Dates: start: 20170327

REACTIONS (4)
  - Nausea [Unknown]
  - Headache [Unknown]
  - Feeling abnormal [Not Recovered/Not Resolved]
  - Loss of consciousness [Recovering/Resolving]

NARRATIVE: CASE EVENT DATE: 20170326
